FAERS Safety Report 6104603-8 (Version None)
Quarter: 2009Q1

REPORT INFORMATION
  Report Type: 
  Country: None (occurrence: None)
  Receive Date: 20090305
  Receipt Date: 20090227
  Transmission Date: 20090719
  Serious: Yes (Other)
  Sender: FDA-Public Use
  Company Number: JP-MERCK-0903USA00504

PATIENT
  Age: 60 Year

DRUGS (5)
  1. COZAAR [Suspect]
     Route: 048
  2. DEPAS [Concomitant]
     Route: 048
  3. MENITAZINE [Concomitant]
     Route: 048
  4. SAYMOTIN S [Concomitant]
     Route: 048
  5. ALLELOCK [Concomitant]
     Route: 048

REACTIONS (1)
  - RHABDOMYOLYSIS [None]
